FAERS Safety Report 13840880 (Version 1)
Quarter: 2017Q3

REPORT INFORMATION
  Report Type: Spontaneous
  Country: CN (occurrence: CN)
  Receive Date: 20170807
  Receipt Date: 20170807
  Transmission Date: 20171127
  Serious: Yes (Death, Other)
  Sender: FDA-Public Use
  Company Number: CN-PFIZER INC-2017337110

PATIENT
  Age: 7 Year
  Sex: Female
  Weight: 24 kg

DRUGS (5)
  1. METHOTREXATE. [Suspect]
     Active Substance: METHOTREXATE
     Indication: ACUTE LEUKAEMIA
     Dosage: 600 MG, 2X/DAY
     Route: 041
     Dates: start: 20170617
  2. METHOTREXATE. [Suspect]
     Active Substance: METHOTREXATE
     Dosage: 12.5 MG, 1X/DAY
     Route: 037
     Dates: start: 20170617
  3. VINDESINE SULFATE [Concomitant]
     Active Substance: VINDESINE SULFATE
     Indication: ACUTE LEUKAEMIA
     Dosage: 2.5 MG, 1X/DAY
     Route: 037
     Dates: start: 20170617
  4. CYTOSAR [Suspect]
     Active Substance: CYTARABINE
     Indication: ACUTE LEUKAEMIA
     Dosage: 27 MG, 1X/DAY
     Route: 037
     Dates: start: 20170617
  5. DEXAMETHASONE SODIUM PHOSPHATE. [Concomitant]
     Active Substance: DEXAMETHASONE SODIUM PHOSPHATE
     Indication: ACUTE LEUKAEMIA
     Dosage: 5 MG, 1X/DAY
     Dates: start: 20170617

REACTIONS (7)
  - Hypoxia [Unknown]
  - Musculoskeletal stiffness [Unknown]
  - Urinary incontinence [Unknown]
  - Muscular weakness [Unknown]
  - Neurological symptom [Fatal]
  - Pulmonary oedema [Fatal]
  - Loss of consciousness [Unknown]

NARRATIVE: CASE EVENT DATE: 20170617
